FAERS Safety Report 4727372-2 (Version None)
Quarter: 2005Q3

REPORT INFORMATION
  Report Type: 
  Country: None (occurrence: None)
  Receive Date: 20050727
  Receipt Date: 20050727
  Transmission Date: 20060218
  Serious: Yes (Hospitalization)
  Sender: FDA-Public Use
  Company Number: None

PATIENT
  Age: 78 Year
  Sex: Female
  Weight: 90.7194 kg

DRUGS (14)
  1. MEPERIDINE [Suspect]
     Indication: SEDATION
     Dosage: 50 MG IV
     Route: 042
     Dates: start: 20050327
  2. MIDAZOLAM [Suspect]
     Indication: SEDATION
     Dosage: 3 MG IV
     Route: 042
     Dates: start: 20050327
  3. STARLIX [Concomitant]
  4. ZESTORETIC [Concomitant]
  5. GLYBURIDE [Concomitant]
  6. VICODIN [Concomitant]
  7. ARIMIDEX [Concomitant]
  8. NEURONTIN [Concomitant]
  9. ALLOPURINOL [Concomitant]
  10. DARVOCET [Concomitant]
  11. PRIMAXIN [Concomitant]
  12. DILAUDID [Concomitant]
  13. HUMALOG [Concomitant]
  14. TYLENOL (CAPLET) [Concomitant]

REACTIONS (4)
  - HYPOTENSION [None]
  - OXYGEN SATURATION DECREASED [None]
  - POST PROCEDURAL COMPLICATION [None]
  - UNRESPONSIVE TO VERBAL STIMULI [None]
